FAERS Safety Report 7899064-2 (Version None)
Quarter: 2011Q4

REPORT INFORMATION
  Report Type: 
  Country: None (occurrence: None)
  Receive Date: 20111107
  Receipt Date: 20111028
  Transmission Date: 20120403
  Serious: Yes (Other)
  Sender: FDA-Public Use
  Company Number: ES-MERCK-1110ESP00061

PATIENT
  Age: 29 Year
  Sex: Male

DRUGS (1)
  1. PROPECIA [Suspect]
     Route: 048
     Dates: start: 20040101, end: 20090101

REACTIONS (3)
  - LIGAMENT SPRAIN [None]
  - TESTICULAR PAIN [None]
  - TENDON RUPTURE [None]
